FAERS Safety Report 8781431 (Version 1)
Quarter: 2012Q4

REPORT INFORMATION
  Report Type: Report from Study
  Country: US (occurrence: US)
  Receive Date: 20120913
  Receipt Date: 20120913
  Transmission Date: 20130627
  Serious: No
  Sender: FDA-Public Use
  Company Number: US-VERTEX PHARMACEUTICAL INC.-AE-2012-007953

PATIENT
  Sex: Male
  Weight: 114.55 kg

DRUGS (3)
  1. INCIVEK [Suspect]
     Indication: HEPATITIS C
     Route: 048
     Dates: start: 20120323, end: 20120514
  2. RIBAVIRIN [Concomitant]
     Indication: HEPATITIS C
     Route: 048
     Dates: start: 20120514
  3. PEGASYS [Concomitant]
     Indication: HEPATITIS C
     Route: 058

REACTIONS (12)
  - Influenza like illness [Not Recovered/Not Resolved]
  - Skin ulcer [Unknown]
  - Chest pain [Unknown]
  - Insomnia [Not Recovered/Not Resolved]
  - Dizziness [Unknown]
  - Dyspnoea [Unknown]
  - Disturbance in attention [Unknown]
  - Constipation [Not Recovered/Not Resolved]
  - Fatigue [Unknown]
  - Anaemia [Not Recovered/Not Resolved]
  - Pruritus [Not Recovered/Not Resolved]
  - Dysgeusia [Not Recovered/Not Resolved]
